FAERS Safety Report 21945009 (Version 1)
Quarter: 2023Q1

REPORT INFORMATION
  Report Type: Spontaneous
  Country: IT (occurrence: IT)
  Receive Date: 20230202
  Receipt Date: 20230202
  Transmission Date: 20230418
  Serious: Yes (Other)
  Sender: FDA-Public Use
  Company Number: None

PATIENT
  Age: 77 Year
  Sex: Female

DRUGS (12)
  1. METFORMIN HYDROCHLORIDE [Suspect]
     Active Substance: METFORMIN HYDROCHLORIDE
     Indication: Type 2 diabetes mellitus
     Dosage: 500 MG, BID
     Route: 048
     Dates: start: 20220823, end: 20230120
  2. IRBESARTAN [Suspect]
     Active Substance: IRBESARTAN
     Indication: Hypertensive heart disease
     Dosage: 300 MG, QD
     Route: 048
     Dates: start: 20220823
  3. AMITRIPTYLINE HYDROCHLORIDE [Concomitant]
     Active Substance: AMITRIPTYLINE HYDROCHLORIDE
     Indication: Migraine prophylaxis
     Dosage: DICHIARA LA CONTINUIT? IN DATA 28/07/2022 CON LAROXYL*OS GTT 20ML 40MG/ML: AMITRIPTILINA CLORIDRATO(
     Route: 048
     Dates: start: 20220728
  4. AMITRIPTYLINE HYDROCHLORIDE [Concomitant]
     Active Substance: AMITRIPTYLINE HYDROCHLORIDE
     Indication: Pain
  5. ACETAMINOPHEN\CODEINE PHOSPHATE [Concomitant]
     Active Substance: ACETAMINOPHEN\CODEINE PHOSPHATE
     Indication: Pain
     Dosage: DICHIARA LA CONTINUIT? IN DATA 30/08/2022 CON TACHIDOL*16CPR RIV 500MG+30MG: PARACETAMOLO/CODEINA FO
     Route: 048
     Dates: start: 20220830
  6. NEBIVOLOL HYDROCHLORIDE [Concomitant]
     Active Substance: NEBIVOLOL HYDROCHLORIDE
     Indication: Hypertensive heart disease
     Dosage: DICHIARA LA CONTINUIT? IN DATA 09/08/2022 CON LOBIVON*28CPR 5MG: NEBIVOLOLO CLORIDRATO (PA)- SCHEMA
     Route: 048
     Dates: start: 20220809
  7. OZEMPIC [Concomitant]
     Active Substance: SEMAGLUTIDE
     Indication: Type 2 diabetes mellitus
     Dosage: DICHIARA LA CONTINUIT? IN DATA 02/08/2022 CON OZEMPIC*1PEN 0,5MG/D+4AGHI: SEMAGLUTIDE (PA) - SCHEMA
     Route: 058
     Dates: start: 20220802
  8. ATORVASTATIN [Concomitant]
     Active Substance: ATORVASTATIN
     Indication: Dyslipidaemia
     Dosage: DICHIARA LA CONTINUIT? IN DATA 30/08/2022 CON TORVAST*30CPR RIV 40MG: ATORVASTATINA CALCIO TRIIDRATO
     Route: 048
     Dates: start: 20220830
  9. TRESIBA [Concomitant]
     Active Substance: INSULIN DEGLUDEC
     Indication: Diabetes mellitus
     Dosage: DICHIARA LA CONTINUIT? IN DATA 18/08/2022 CON TRESIBA*FLEXT 5PEN 3ML 100U/ML: INSULINA DEGLUDEC SEMA
     Route: 058
     Dates: start: 20220818
  10. LORATADINE [Concomitant]
     Active Substance: LORATADINE
     Indication: Rhinitis allergic
     Dosage: DICHIARA LA CONTINUIT? IN DATA 23/08/2022 CON FRISTAMIN*20CPR 10MG: LORATADINA (PA)- SCHEMA POSOLOGI
     Route: 048
     Dates: start: 20220823
  11. DOXAZOSIN [Concomitant]
     Active Substance: DOXAZOSIN MESYLATE
     Indication: Essential hypertension
     Dosage: DICHIARA LA CONTINUIT? IN DATA 28/07/2022 CON DEDRALEN*20CPR 4MG: DOXAZOSINA MESILATO (PA)- SCHEMA P
     Route: 048
     Dates: start: 20220728
  12. CLOPIDOGREL BISULFATE [Concomitant]
     Active Substance: CLOPIDOGREL BISULFATE
     Indication: Thrombosis prophylaxis
     Dosage: DICHIARA LA CONTINUIT? IN DATA 18/08/2022 CON CLOPIDOGREL ZEN*28CPR RIV 75MG: CLOPIDOGREL BESILATO (
     Route: 048
     Dates: start: 20220818

REACTIONS (1)
  - Renal failure [Unknown]

NARRATIVE: CASE EVENT DATE: 20220907
